FAERS Safety Report 21652554 (Version 1)
Quarter: 2022Q4

REPORT INFORMATION
  Report Type: Report from Study
  Country: US (occurrence: US)
  Receive Date: 20221128
  Receipt Date: 20221128
  Transmission Date: 20230113
  Serious: No
  Sender: FDA-Public Use
  Company Number: US-ABBVIE-4168774

PATIENT
  Age: 52 Year
  Sex: Female

DRUGS (1)
  1. HUMIRA [Suspect]
     Active Substance: ADALIMUMAB
     Indication: Rheumatoid arthritis
     Route: 058
     Dates: start: 20220913

REACTIONS (5)
  - Fatigue [Unknown]
  - Influenza [Unknown]
  - Pain [Unknown]
  - Chills [Unknown]
  - Cough [Unknown]

NARRATIVE: CASE EVENT DATE: 20221017
